FAERS Safety Report 25306604 (Version 2)
Quarter: 2025Q2

REPORT INFORMATION
  Report Type: Spontaneous
  Country: US (occurrence: US)
  Receive Date: 20250513
  Receipt Date: 20250516
  Transmission Date: 20250717
  Serious: Yes (Hospitalization)
  Sender: Vantive US Healthcare
  Company Number: US-VANTIVE-2025VAN002129

PATIENT
  Age: 74 Year
  Sex: Male

DRUGS (2)
  1. DIANEAL [Suspect]
     Active Substance: CALCIUM CHLORIDE\DEXTROSE\MAGNESIUM CHLORIDE\SODIUM CHLORIDE\SODIUM LACTATE
     Indication: End stage renal disease
     Route: 033
     Dates: start: 20241119
  2. EXTRANEAL [Suspect]
     Active Substance: CALCIUM CHLORIDE\ICODEXTRIN\MAGNESIUM CHLORIDE\SODIUM CHLORIDE\SODIUM LACTATE
     Indication: End stage renal disease
     Route: 033
     Dates: start: 20250329, end: 20250418

REACTIONS (10)
  - Pain in extremity [Not Recovered/Not Resolved]
  - Drug hypersensitivity [Recovering/Resolving]
  - Rash [Recovering/Resolving]
  - Pruritus [Recovering/Resolving]
  - Skin exfoliation [Not Recovered/Not Resolved]
  - Erythema [Recovering/Resolving]
  - Dry skin [Recovering/Resolving]
  - Skin haemorrhage [Unknown]
  - Skin lesion [Unknown]
  - Scab [Unknown]

NARRATIVE: CASE EVENT DATE: 20250414
